FAERS Safety Report 15341873 (Version 2)
Quarter: 2022Q3

REPORT INFORMATION
  Report Type: Report from Study
  Country: FR (occurrence: FR)
  Receive Date: 20180901
  Receipt Date: 20220801
  Transmission Date: 20221027
  Serious: Yes (Hospitalization, Other)
  Sender: FDA-Public Use
  Company Number: FR-AMGEN-FRACT2018114343

PATIENT
  Age: 80 Year
  Sex: Male
  Weight: 62 kg

DRUGS (7)
  1. PANITUMUMAB [Suspect]
     Active Substance: PANITUMUMAB
     Indication: Colorectal cancer
     Dosage: 380 MG (6160 MG), UNK
     Route: 042
     Dates: start: 20171121
  2. FLUOROURACIL [Suspect]
     Active Substance: FLUOROURACIL
     Indication: Colorectal cancer
     Dosage: 700 MG (TOTAL DOSE 10300 MG), UNK
     Route: 040
     Dates: start: 20171121
  3. FLUOROURACIL [Suspect]
     Active Substance: FLUOROURACIL
     Dosage: 3650 MG (TOTAL DOSE 55000 MG), UNK
     Route: 042
     Dates: start: 20171121
  4. OXALIPLATIN [Suspect]
     Active Substance: OXALIPLATIN
     Indication: Colorectal cancer
     Dosage: 95 MG (TOTAL DOSE 1265 MG), UNK
     Route: 042
     Dates: start: 20171121
  5. IRINOTECAN [Suspect]
     Active Substance: IRINOTECAN
     Indication: Colorectal cancer
     Dosage: 260 MG (TOTAL DOSE 3120 MG), UNK
     Route: 042
     Dates: start: 20171121
  6. LEVOLEUCOVORIN CALCIUM [Suspect]
     Active Substance: LEVOLEUCOVORIN CALCIUM
     Indication: Colorectal cancer
     Dosage: 260 MG (TOTAL DOSE 3880 MG), UNK
     Route: 042
     Dates: start: 20171121
  7. INNOHEP [Concomitant]
     Active Substance: TINZAPARIN SODIUM
     Indication: Pulmonary embolism
     Dosage: 11000 UNIT, QD
     Route: 058
     Dates: start: 20180404

REACTIONS (1)
  - Urinary retention [Recovered/Resolved]

NARRATIVE: CASE EVENT DATE: 20180803
